FAERS Safety Report 7949209-0 (Version None)
Quarter: 2011Q4

REPORT INFORMATION
  Report Type: 
  Country: None (occurrence: None)
  Receive Date: 20111130
  Receipt Date: 20111116
  Transmission Date: 20120403
  Serious: Yes (Hospitalization)
  Sender: FDA-Public Use
  Company Number: PHHO2011FR16069

PATIENT
  Sex: Male
  Weight: 89 kg

DRUGS (5)
  1. FUROSEMIDE [Suspect]
  2. BLINDED PLACEBO [Suspect]
     Indication: CARDIAC FAILURE ACUTE
     Dosage: CODE NOT BROKEN
     Route: 048
     Dates: start: 20101001, end: 20110828
  3. SPIRONOLACTONE [Suspect]
  4. BLINDED NO TREATMENT RECEIVED [Suspect]
     Indication: CARDIAC FAILURE ACUTE
     Dosage: CODE NOT BROKEN
     Route: 048
     Dates: start: 20101001, end: 20110828
  5. BLINDED ALISKIREN [Suspect]
     Indication: CARDIAC FAILURE ACUTE
     Dosage: CODE NOT BROKEN
     Route: 048
     Dates: start: 20101001, end: 20110828

REACTIONS (8)
  - HYPOVOLAEMIA [None]
  - HYPERKALAEMIA [None]
  - DEVICE BREAKAGE [None]
  - RENAL FAILURE ACUTE [None]
  - CONCOMITANT DISEASE PROGRESSION [None]
  - HYPONATRAEMIA [None]
  - ANAEMIA POSTOPERATIVE [None]
  - SEPTIC SHOCK [None]
